FAERS Safety Report 7333873-3 (Version None)
Quarter: 2011Q1

REPORT INFORMATION
  Report Type: 
  Country: None (occurrence: None)
  Receive Date: 20110307
  Receipt Date: 20110224
  Transmission Date: 20110831
  Serious: Yes (Hospitalization)
  Sender: FDA-Public Use
  Company Number: US-BIOGENIDEC-2011BI004043

PATIENT
  Age: 50 Year
  Sex: Female

DRUGS (14)
  1. TYSABRI [Suspect]
     Indication: MULTIPLE SCLEROSIS
     Route: 042
     Dates: start: 20061129, end: 20100623
  2. PLAQUENIL [Concomitant]
  3. SEROQUEL [Concomitant]
  4. FOLIC ACID [Concomitant]
  5. CELEBREX [Concomitant]
  6. KLONOPIN [Concomitant]
  7. LYRICA [Concomitant]
  8. AVONEX [Concomitant]
     Indication: MULTIPLE SCLEROSIS
     Route: 030
  9. LAMICTAL [Concomitant]
  10. LEXAPRO [Concomitant]
  11. ULTRACET [Concomitant]
  12. DOMPERIDONE [Concomitant]
  13. NEXIUM [Concomitant]
  14. TOPAMAX [Concomitant]

REACTIONS (2)
  - INTERVERTEBRAL DISC OPERATION [None]
  - SPINAL LAMINECTOMY [None]
